FAERS Safety Report 20332013 (Version 1)
Quarter: 2022Q1

REPORT INFORMATION
  Report Type: Spontaneous
  Country: US (occurrence: None)
  Receive Date: 20220113
  Receipt Date: 20220113
  Transmission Date: 20220423
  Serious: Yes (Other)
  Sender: FDA-Public Use
  Company Number: None

PATIENT
  Age: 44 Year
  Sex: Male
  Weight: 113.4 kg

DRUGS (11)
  1. EPCLUSA [Suspect]
     Active Substance: SOFOSBUVIR\VELPATASVIR
     Indication: Chronic hepatitis C
     Dosage: FREQUENCY : DAILY;?
     Route: 048
  2. LAMOTRIGINE [Concomitant]
     Active Substance: LAMOTRIGINE
  3. LEVOFLOXACIN [Concomitant]
     Active Substance: LEVOFLOXACIN
  4. TAMSULOSIN [Concomitant]
     Active Substance: TAMSULOSIN
  5. ROPINIROLE [Concomitant]
     Active Substance: ROPINIROLE
  6. QUETIAPINE [Concomitant]
     Active Substance: QUETIAPINE
  7. FOLIC ACID [Concomitant]
     Active Substance: FOLIC ACID
  8. ALLOPURINOL [Concomitant]
     Active Substance: ALLOPURINOL
  9. GABAPENTIN [Concomitant]
     Active Substance: GABAPENTIN
  10. TIVICAY [Concomitant]
     Active Substance: DOLUTEGRAVIR SODIUM
  11. DESCOVY [Concomitant]
     Active Substance: EMTRICITABINE\TENOFOVIR ALAFENAMIDE FUMARATE

REACTIONS (2)
  - Hepatitis C [None]
  - Therapy non-responder [None]

NARRATIVE: CASE EVENT DATE: 20200322
